FAERS Safety Report 20985887 (Version 2)
Quarter: 2022Q2

REPORT INFORMATION
  Report Type: Spontaneous
  Country: HU (occurrence: HU)
  Receive Date: 20220621
  Receipt Date: 20220622
  Transmission Date: 20220720
  Serious: Yes (Other)
  Sender: FDA-Public Use
  Company Number: HU-NOVARTISPH-NVSC2022HU139065

PATIENT
  Age: 31 Year
  Sex: Female

DRUGS (8)
  1. CYTARABINE [Suspect]
     Active Substance: CYTARABINE
     Indication: Acute myeloid leukaemia
     Dosage: UNK (HIGH DOSE)
     Route: 065
     Dates: start: 199907
  2. AZITHROMYCIN [Suspect]
     Active Substance: AZITHROMYCIN
     Indication: Pneumonia
     Dosage: UNK
     Route: 065
     Dates: start: 2021
  3. FLUCONAZOLE [Suspect]
     Active Substance: FLUCONAZOLE
     Indication: Pyrexia
     Dosage: UNK
     Route: 065
     Dates: start: 2021
  4. CEFTRIAXONE [Suspect]
     Active Substance: CEFTRIAXONE
     Indication: Pneumonia
     Dosage: UNK
     Route: 065
     Dates: start: 2021
  5. MITOXANTRONE [Concomitant]
     Active Substance: MITOXANTRONE HYDROCHLORIDE
     Indication: Acute myeloid leukaemia
     Dosage: UNK
     Route: 065
     Dates: start: 199907
  6. CYTARABINE [Concomitant]
     Active Substance: CYTARABINE
     Indication: Product used for unknown indication
     Dosage: UNK (HIGH DOSE) (4X)
     Route: 065
  7. ASPIRIN [Concomitant]
     Active Substance: ASPIRIN
     Indication: Product used for unknown indication
     Dosage: 100 MG, QD
     Route: 065
     Dates: start: 201107
  8. HYDROXYUREA [Concomitant]
     Active Substance: HYDROXYUREA
     Indication: Product used for unknown indication
     Dosage: 500 MG, QD
     Route: 065
     Dates: start: 201107

REACTIONS (14)
  - Pulmonary fibrosis [Unknown]
  - Interstitial lung disease [Unknown]
  - Blood lactate dehydrogenase increased [Unknown]
  - Pulmonary mass [Not Recovered/Not Resolved]
  - Procalcitonin increased [Recovered/Resolved]
  - C-reactive protein increased [Recovered/Resolved]
  - Chronic obstructive pulmonary disease [Unknown]
  - Emphysema [Unknown]
  - Pleural effusion [Unknown]
  - Lymphadenopathy [Unknown]
  - Pleural thickening [Unknown]
  - Haemoglobin decreased [Unknown]
  - White blood cell count increased [Unknown]
  - Platelet count increased [Unknown]

NARRATIVE: CASE EVENT DATE: 20210101
